FAERS Safety Report 13322591 (Version 1)
Quarter: 2017Q1

REPORT INFORMATION
  Report Type: Spontaneous
  Country: TR (occurrence: TR)
  Receive Date: 20170310
  Receipt Date: 20170310
  Transmission Date: 20170428
  Serious: Yes (Hospitalization, Other)
  Sender: FDA-Public Use
  Company Number: TR-BAYER-2017-046190

PATIENT
  Age: 80 Year
  Sex: Male

DRUGS (5)
  1. ACETYLSALICYLIC ACID (} 100 MG) [Suspect]
     Active Substance: ASPIRIN
     Dosage: 100 MG, QD
  2. ENOXAPARIN [Interacting]
     Active Substance: ENOXAPARIN
     Indication: PULMONARY EMBOLISM
     Dosage: 0.6 ML, BID
  3. CLOPIDOGREL [Interacting]
     Active Substance: CLOPIDOGREL BISULFATE
     Dosage: 25 MG, QD
  4. ACETYLSALICYLIC ACID (} 100 MG) [Interacting]
     Active Substance: ASPIRIN
     Dosage: 25 MG, QD
  5. ACETYLSALICYLIC ACID (} 100 MG) [Interacting]
     Active Substance: ASPIRIN
     Dosage: .6 ML, BID

REACTIONS (8)
  - Labelled drug-drug interaction medication error [Unknown]
  - Tracheal obstruction [Recovered/Resolved]
  - Dyspnoea [Recovered/Resolved]
  - Respiratory alkalosis [Recovering/Resolving]
  - Atelectasis [Recovering/Resolving]
  - Tracheal haemorrhage [Unknown]
  - Thrombosis [Recovered/Resolved]
  - Drug administration error [Unknown]
